FAERS Safety Report 8419053-9 (Version None)
Quarter: 2012Q2

REPORT INFORMATION
  Report Type: 
  Country: None (occurrence: None)
  Receive Date: 20120607
  Receipt Date: 20120605
  Transmission Date: 20120825
  Serious: Yes (Other)
  Sender: FDA-Public Use
  Company Number: PHEH2012US008933

PATIENT
  Sex: Male
  Weight: 97.052 kg

DRUGS (11)
  1. ALLOPURINOL [Concomitant]
  2. SIMVASTATIN [Concomitant]
  3. DIOVAN [Concomitant]
  4. CARVEDILOL [Concomitant]
  5. PRILOSEC [Concomitant]
  6. COMPAZINE [Concomitant]
  7. TEKTURNA [Concomitant]
  8. AFINITOR [Suspect]
     Indication: RENAL CELL CARCINOMA
     Dosage: 5 MG, QD
     Route: 048
     Dates: start: 20120116, end: 20120330
  9. PROZAC [Concomitant]
  10. CALCITRIOL [Concomitant]
  11. LEVOTHROID [Concomitant]

REACTIONS (4)
  - DYSPNOEA [None]
  - LUNG NEOPLASM [None]
  - BLOOD CREATINE INCREASED [None]
  - PROTEINURIA [None]
